FAERS Safety Report 13261658 (Version 1)
Quarter: 2017Q1

REPORT INFORMATION
  Report Type: Report from Study
  Country: US (occurrence: US)
  Receive Date: 20170222
  Receipt Date: 20170222
  Transmission Date: 20170428
  Serious: No
  Sender: FDA-Public Use
  Company Number: PHEH2017US005200

PATIENT
  Sex: Male

DRUGS (2)
  1. GILENYA [Suspect]
     Active Substance: FINGOLIMOD HYDROCHLORIDE
     Indication: MULTIPLE SCLEROSIS
     Dosage: 0.5 MG, QD
     Route: 048
     Dates: start: 20161223
  2. HALCION [Concomitant]
     Active Substance: TRIAZOLAM
     Indication: ANXIETY
     Dosage: 0.25 MG, QD (QHS)
     Route: 065

REACTIONS (3)
  - Fatigue [Unknown]
  - Visual impairment [Unknown]
  - Nausea [Unknown]
